FAERS Safety Report 11707794 (Version 1)
Quarter: 2015Q4

REPORT INFORMATION
  Report Type: Report from Study
  Country: BR (occurrence: BR)
  Receive Date: 20151106
  Receipt Date: 20151106
  Transmission Date: 20160304
  Serious: Yes (Hospitalization, Other)
  Sender: FDA-Public Use
  Company Number: PHHY2015BR143732

PATIENT
  Sex: Female
  Weight: 67 kg

DRUGS (6)
  1. METFORMIN [Suspect]
     Active Substance: METFORMIN HYDROCHLORIDE
     Indication: DIABETES MELLITUS
     Dosage: 850 MG, BID
     Route: 048
  2. GLIFAGE [Suspect]
     Active Substance: METFORMIN HYDROCHLORIDE
     Indication: DIABETES MELLITUS
     Dosage: 850 MG, BID
     Route: 048
  3. DIOVAN HCT [Suspect]
     Active Substance: HYDROCHLOROTHIAZIDE\VALSARTAN
     Indication: BLOOD PRESSURE ABNORMAL
     Dosage: 1 DF (VALSARTAN 160 MG/ HYDROCHLORTHIAZIDE 12.5 MG), QD
     Route: 048
  4. HYDROCHLOROTHIAZIDE. [Suspect]
     Active Substance: HYDROCHLOROTHIAZIDE
     Indication: BLOOD PRESSURE ABNORMAL
     Dosage: 12.5 MG, QD
     Route: 048
  5. DIOVAN [Suspect]
     Active Substance: VALSARTAN
     Indication: BLOOD PRESSURE ABNORMAL
     Dosage: 80 MG, QD
     Route: 048
  6. DIOVAN [Suspect]
     Active Substance: VALSARTAN
     Dosage: 160 MG, QD
     Route: 048

REACTIONS (14)
  - Hypersensitivity [Recovering/Resolving]
  - Laryngeal disorder [Recovering/Resolving]
  - Renal impairment [Recovering/Resolving]
  - Hypovitaminosis [Recovering/Resolving]
  - Nervous system disorder [Recovering/Resolving]
  - Syncope [Recovering/Resolving]
  - Malaise [Recovering/Resolving]
  - Blood sodium decreased [Recovering/Resolving]
  - Blood potassium increased [Recovering/Resolving]
  - Cerebrovascular accident [Recovering/Resolving]
  - Blood creatinine increased [Recovering/Resolving]
  - Dementia [Recovering/Resolving]
  - Hearing impaired [Unknown]
  - Diabetes mellitus [Unknown]
